FAERS Safety Report 23328466 (Version 1)
Quarter: 2023Q4

REPORT INFORMATION
  Report Type: Spontaneous
  Country: CN (occurrence: CN)
  Receive Date: 20231221
  Receipt Date: 20231221
  Transmission Date: 20240110
  Serious: Yes (Life-Threatening, Hospitalization)
  Sender: FDA-Public Use
  Company Number: CN-ELI_LILLY_AND_COMPANY-CN202312011632

PATIENT
  Age: 71 Year
  Sex: Male
  Weight: 92 kg

DRUGS (4)
  1. ALIMTA [Suspect]
     Active Substance: PEMETREXED DISODIUM
     Indication: Carcinoid tumour pulmonary
     Dosage: 0.9 G, DAILY
     Route: 065
     Dates: start: 20231113, end: 20231113
  2. CARBOPLATIN [Suspect]
     Active Substance: CARBOPLATIN
     Indication: Neoplasm malignant
     Dosage: 480 MG, DAILY
     Route: 065
     Dates: start: 20231113, end: 20231113
  3. SODIUM CHLORIDE [Concomitant]
     Active Substance: SODIUM CHLORIDE
     Indication: Product used for unknown indication
     Dosage: 100 ML, DAILY
     Route: 065
     Dates: start: 20231113, end: 20231113
  4. DEXTROSE [Concomitant]
     Active Substance: DEXTROSE\DEXTROSE MONOHYDRATE
     Indication: Product used for unknown indication
     Dosage: 500 ML, DAILY
     Route: 065
     Dates: start: 20231113, end: 20231113

REACTIONS (1)
  - Myelosuppression [Unknown]

NARRATIVE: CASE EVENT DATE: 20231124
